FAERS Safety Report 9282398 (Version 1)
Quarter: 2013Q2

REPORT INFORMATION
  Report Type: Spontaneous
  Country: US (occurrence: US)
  Receive Date: 20130510
  Receipt Date: 20130510
  Transmission Date: 20140414
  Serious: Yes (Other)
  Sender: FDA-Public Use
  Company Number: US-BAYER-2013-056037

PATIENT
  Age: 52 Year
  Sex: Female
  Weight: 74.83 kg

DRUGS (13)
  1. YAZ [Suspect]
     Indication: MENSTRUAL CYCLE MANAGEMENT
  2. GIANVI [Suspect]
  3. AMOXICILLIN [Concomitant]
     Dosage: 500 MG, UNK
     Route: 048
     Dates: start: 20110901
  4. AMOXICILLIN [Concomitant]
     Dosage: 500 MG, UNK
     Dates: start: 20111013
  5. AMOXICILLIN [Concomitant]
     Dosage: 500 MG, UNK
     Dates: start: 20111101
  6. FUROSEMIDE [Concomitant]
     Dosage: 20 MG, UNK
     Route: 048
     Dates: start: 20110916, end: 20111106
  7. VENLAFAXINE [Concomitant]
     Dosage: 75 MG, UNK
     Route: 048
     Dates: start: 20111013
  8. METHYLPREDNISOLONE [Concomitant]
     Dosage: 4.0 MG, UNK
     Route: 048
     Dates: start: 20111110
  9. CIPRO [Concomitant]
     Dosage: 500 MG, UNK
     Route: 048
     Dates: start: 20111110
  10. EFFEXOR [Concomitant]
  11. LASIX [Concomitant]
  12. ZITHROMAX Z-PAK [Concomitant]
  13. IBUPROFEN [Concomitant]

REACTIONS (1)
  - Deep vein thrombosis [None]
